FAERS Safety Report 9439196 (Version 2)
Quarter: 2013Q4

REPORT INFORMATION
  Report Type: Spontaneous
  Country: US (occurrence: US)
  Receive Date: 20130803
  Receipt Date: 20131016
  Transmission Date: 20140711
  Serious: No
  Sender: FDA-Public Use
  Company Number: US-009507513-1007USA02886

PATIENT
  Age: 70 Year
  Sex: Female

DRUGS (12)
  1. JANUVIA [Suspect]
     Indication: DIABETES MELLITUS
     Dosage: 100 MG, QD IN THE MORNING
     Route: 048
     Dates: start: 20100607
  2. JANUVIA [Suspect]
     Dosage: 100 MG, QD
     Route: 048
     Dates: start: 201307
  3. GLIMEPIRIDE [Suspect]
     Dosage: 1 MG, FREQUENCY: UNKNOWN
  4. GLIMEPIRIDE [Suspect]
     Dosage: 3 MG, QAM
  5. GLIMEPIRIDE [Suspect]
     Dosage: 3 MG, QPM
  6. GLIMEPIRIDE [Suspect]
     Dosage: 4 MG, QPM
  7. NOVASEN [Concomitant]
  8. TRICOR (FENOFIBRATE) [Concomitant]
  9. PREVACID [Concomitant]
  10. LUMIGAN [Concomitant]
  11. NORVASC [Concomitant]
  12. CRESTOR [Concomitant]

REACTIONS (5)
  - Chills [Not Recovered/Not Resolved]
  - Blood glucose abnormal [Not Recovered/Not Resolved]
  - Nausea [Not Recovered/Not Resolved]
  - Drug ineffective [Unknown]
  - Off label use [Unknown]
